FAERS Safety Report 8408529-6 (Version None)
Quarter: 2012Q2

REPORT INFORMATION
  Report Type: 
  Country: None (occurrence: None)
  Receive Date: 20120604
  Receipt Date: 20120522
  Transmission Date: 20120825
  Serious: Yes (Life-Threatening)
  Sender: FDA-Public Use
  Company Number: CH-FRI-1000030449

PATIENT
  Sex: Female

DRUGS (13)
  1. LAXOBERON [Concomitant]
     Indication: CONSTIPATION
     Route: 048
     Dates: start: 20120125
  2. ZOFRAN [Suspect]
     Indication: VOMITING
  3. MORPHINE [Concomitant]
     Indication: SPONDYLOARTHROPATHY
     Route: 048
     Dates: start: 20120125
  4. DIGOXIN [Concomitant]
     Indication: ATRIAL FIBRILLATION
     Dosage: 0.25 MG
     Route: 048
  5. VITAMIN D3 + CALCIUM TAB 500 MG [Concomitant]
     Indication: OSTEOPOROSIS
     Dosage: 1000 MG
  6. ZOFRAN [Suspect]
     Indication: NAUSEA
     Dosage: 12 MG
     Route: 040
     Dates: start: 20120215, end: 20120304
  7. SINTROM [Suspect]
     Indication: ATRIAL FIBRILLATION
     Dosage: 3 MG
     Route: 048
     Dates: end: 20120220
  8. FLOXAPEN [Concomitant]
     Indication: SPONDYLOARTHROPATHY
     Route: 042
     Dates: start: 20120125
  9. DIGOXIN [Concomitant]
     Indication: ATRIAL FLUTTER
  10. CITALOPRAM [Suspect]
     Indication: DEPRESSION
     Dosage: 10 MG
     Route: 048
  11. TORSEMIDE [Suspect]
     Dosage: 10 MG
     Route: 048
  12. LORAZEPAM [Concomitant]
     Indication: ANXIETY DISORDER
     Route: 048
  13. ZOLPIDEM [Concomitant]
     Indication: SLEEP DISORDER

REACTIONS (1)
  - INTERNATIONAL NORMALISED RATIO INCREASED [None]
